FAERS Safety Report 7314490-8 (Version None)
Quarter: 2011Q1

REPORT INFORMATION
  Report Type: 
  Country: None (occurrence: None)
  Receive Date: 20110225
  Receipt Date: 20101112
  Transmission Date: 20110831
  Serious: No
  Sender: FDA-Public Use
  Company Number: US-MYLANLABS-2010S1016760

PATIENT
  Age: 18 Year
  Sex: Female
  Weight: 65.32 kg

DRUGS (2)
  1. AMNESTEEM [Suspect]
     Indication: ACNE
     Route: 048
     Dates: start: 20100104, end: 20100910
  2. MIRCETTE [Concomitant]

REACTIONS (1)
  - HEADACHE [None]
